FAERS Safety Report 5100057-9 (Version None)
Quarter: 2006Q3

REPORT INFORMATION
  Report Type: 
  Country: None (occurrence: None)
  Receive Date: 20060906
  Receipt Date: 20060811
  Transmission Date: 20061208
  Serious: Yes (Hospitalization)
  Sender: FDA-Public Use
  Company Number: 2006BH012784

PATIENT
  Age: 72 Year
  Sex: Male
  Weight: 75.9 kg

DRUGS (1)
  1. DIANEAL [Suspect]
     Indication: RENAL FAILURE CHRONIC
     Dosage: 6 L; IP
     Route: 033

REACTIONS (3)
  - CULTURE POSITIVE [None]
  - PERITONITIS [None]
  - STAPHYLOCOCCAL INFECTION [None]
